FAERS Safety Report 8272767-6 (Version None)
Quarter: 2012Q2

REPORT INFORMATION
  Report Type: 
  Country: None (occurrence: None)
  Receive Date: 20120411
  Receipt Date: 20120402
  Transmission Date: 20120825
  Serious: Yes (Death, Hospitalization)
  Sender: FDA-Public Use
  Company Number: US-BIOGENIDEC-2012BI011396

PATIENT
  Age: 67 Year
  Sex: Male

DRUGS (14)
  1. VITAMIN B-12 [Concomitant]
  2. MULTI-VITAMIN [Concomitant]
  3. FINASTERIDE [Concomitant]
     Route: 048
  4. VITAMIN E [Concomitant]
     Route: 048
  5. ASCORBIC ACID [Concomitant]
     Route: 048
  6. VITAMIN A [Concomitant]
     Route: 048
  7. TYSABRI [Suspect]
     Indication: CROHN'S DISEASE
     Route: 042
     Dates: start: 20100922, end: 20111114
  8. INSULIN [Concomitant]
     Indication: DIABETES MELLITUS
     Route: 058
  9. PREDNISONE TAB [Concomitant]
     Indication: CROHN'S DISEASE
  10. NOVOLOG [Concomitant]
     Indication: DIABETES MELLITUS
     Route: 058
  11. ZINC SULFATE [Concomitant]
     Route: 048
  12. NICOTINE [Concomitant]
     Route: 061
  13. PERCOCET [Concomitant]
     Indication: PAIN
     Route: 048
     Dates: start: 20120201
  14. LANTUS [Concomitant]
     Indication: DIABETES MELLITUS

REACTIONS (2)
  - DRY GANGRENE [None]
  - PNEUMONIA [None]
